FAERS Safety Report 4533244-9 (Version None)
Quarter: 2004Q4

REPORT INFORMATION
  Report Type: 
  Country: None (occurrence: None)
  Receive Date: 20041107
  Receipt Date: 20040802
  Transmission Date: 20050328
  Serious: Yes (Hospitalization)
  Sender: FDA-Public Use
  Company Number: 800078

PATIENT
  Age: 12 Year
  Sex: Male
  Weight: 29 kg

DRUGS (12)
  1. DIANEAL [Suspect]
     Indication: PERITONEAL DIALYSIS
     Dosage: 12 L; QHS; INTRAPERITONEAL
     Route: 033
     Dates: start: 20020205
  2. COLACE [Concomitant]
  3. SENOKOT [Concomitant]
  4. CALCITRIOL [Concomitant]
  5. ZANTAC [Concomitant]
  6. FOLIC ACID [Concomitant]
  7. NUTROPIN [Concomitant]
  8. FE-TINC [Concomitant]
  9. EPOGEN [Concomitant]
  10. BACTROBAN [Concomitant]
  11. NEPROX [Concomitant]
  12. LACTULOSE [Concomitant]

REACTIONS (1)
  - PERITONITIS [None]
